FAERS Safety Report 5678487-6 (Version None)
Quarter: 2008Q1

REPORT INFORMATION
  Report Type: 
  Country: None (occurrence: None)
  Receive Date: 20080325
  Receipt Date: 20080320
  Transmission Date: 20080703
  Serious: Yes (Hospitalization, Other)
  Sender: FDA-Public Use
  Company Number: GB-BRISTOL-MYERS SQUIBB COMPANY-13717509

PATIENT
  Age: 31 Year
  Sex: Male

DRUGS (7)
  1. EFAVIRENZ [Suspect]
     Indication: HIV INFECTION
     Route: 065
     Dates: start: 20031101
  2. LAMIVUDINE [Suspect]
     Indication: HIV INFECTION
     Route: 065
     Dates: start: 20031101
  3. VIREAD [Suspect]
     Indication: HIV INFECTION
     Dates: start: 20031101
  4. BACTRIM [Concomitant]
  5. DOXORUBICIN HCL [Concomitant]
     Indication: PLEURAL EFFUSION
  6. FLUCONAZOLE [Concomitant]
     Indication: PROPHYLAXIS
  7. FLUCONAZOLE [Concomitant]
     Indication: MENINGITIS CRYPTOCOCCAL

REACTIONS (7)
  - COLONIC POLYP [None]
  - DIARRHOEA [None]
  - DIARRHOEA HAEMORRHAGIC [None]
  - IMMUNE RECONSTITUTION SYNDROME [None]
  - PAPILLOMA [None]
  - POLYP [None]
  - SCHISTOSOMIASIS [None]
